FAERS Safety Report 16576472 (Version 1)
Quarter: 2019Q3

REPORT INFORMATION
  Report Type: Spontaneous
  Country: US (occurrence: US)
  Receive Date: 20190603
  Receipt Date: 20190603
  Transmission Date: 20191004
  Serious: No
  Sender: FDA-Public Use
  Company Number: None

PATIENT
  Sex: Male

DRUGS (1)
  1. EPCLUSA [Suspect]
     Active Substance: SOFOSBUVIR\VELPATASVIR
     Indication: HEPATITIS C
     Dosage: :400/100MG DAILY ORALLY?
     Route: 048
     Dates: start: 20190313

REACTIONS (5)
  - Decreased appetite [None]
  - Apathy [None]
  - Disturbance in attention [None]
  - Anxiety [None]
  - Asthenia [None]
